FAERS Safety Report 5788854-8 (Version None)
Quarter: 2008Q2

REPORT INFORMATION
  Report Type: 
  Country: None (occurrence: None)
  Receive Date: 20080626
  Receipt Date: 20080618
  Transmission Date: 20081010
  Serious: Yes (Hospitalization)
  Sender: FDA-Public Use
  Company Number: US-BAXTER-2008BH006432

PATIENT
  Age: 62 Year
  Sex: Male

DRUGS (1)
  1. VANCOMYCIN HCL [Suspect]
     Indication: INFECTION
     Route: 042
     Dates: start: 20071001, end: 20071001

REACTIONS (1)
  - LINEAR IGA DISEASE [None]
